FAERS Safety Report 4604744-8 (Version None)
Quarter: 2005Q1

REPORT INFORMATION
  Report Type: 
  Country: None (occurrence: None)
  Receive Date: 20050217
  Receipt Date: 20041029
  Transmission Date: 20050727
  Serious: No
  Sender: FDA-Public Use
  Company Number: S04-USA-07174-01

PATIENT
  Age: 63 Year
  Sex: Male

DRUGS (4)
  1. NAMENDA [Suspect]
     Indication: PARKINSON'S DISEASE
     Dosage: 10 MG BID PO
     Route: 048
     Dates: start: 20040401
  2. LITHONATE [Concomitant]
  3. SEROQUEL [Concomitant]
  4. ACCUPRIL [Concomitant]

REACTIONS (1)
  - FATIGUE [None]
